FAERS Safety Report 8225691-9 (Version None)
Quarter: 2012Q1

REPORT INFORMATION
  Report Type: 
  Country: None (occurrence: None)
  Receive Date: 20120321
  Receipt Date: 20120312
  Transmission Date: 20120608
  Serious: Yes (Hospitalization)
  Sender: FDA-Public Use
  Company Number: US-ELI_LILLY_AND_COMPANY-US201108001649

PATIENT
  Sex: Female
  Weight: 43.5 kg

DRUGS (1)
  1. FORTEO [Suspect]
     Dosage: 20 UG, QD
     Route: 058
     Dates: start: 20110712

REACTIONS (3)
  - MUSCULAR WEAKNESS [None]
  - FALL [None]
  - OSTEOPOROSIS [None]
